FAERS Safety Report 17305499 (Version 3)
Quarter: 2022Q1

REPORT INFORMATION
  Report Type: Spontaneous
  Country: US (occurrence: US)
  Receive Date: 20200123
  Receipt Date: 20220223
  Transmission Date: 20220424
  Serious: Yes (Other)
  Sender: FDA-Public Use
  Company Number: US-PFIZER INC-2020029835

PATIENT
  Age: 76 Year
  Sex: Female
  Weight: 70.31 kg

DRUGS (1)
  1. DESVENLAFAXINE SUCCINATE [Suspect]
     Active Substance: DESVENLAFAXINE SUCCINATE
     Dosage: 100 MG, 1X/DAY

REACTIONS (4)
  - Narcolepsy [Unknown]
  - Blood sodium decreased [Unknown]
  - Renal disorder [Unknown]
  - Nausea [Unknown]

NARRATIVE: CASE EVENT DATE: 19850101
